FAERS Safety Report 8853328 (Version 1)
Quarter: 2012Q4

REPORT INFORMATION
  Report Type: 
  Country: IS (occurrence: IS)
  Receive Date: 20121022
  Receipt Date: 20121022
  Transmission Date: 20130627
  Serious: Yes (Hospitalization)
  Sender: FDA-Public Use
  Company Number: IS-WATSON-2012-17938

PATIENT
  Age: 55 Year
  Sex: Male

DRUGS (9)
  1. ATORVASTATIN (UNKNOWN) [Suspect]
     Indication: MYOCARDIAL ISCHAEMIA
     Dosage: UNK mg, daily
     Route: 065
  2. SIMVASTATIN (UNKNOWN) [Suspect]
     Indication: MYOCARDIAL ISCHAEMIA
     Dosage: 80 mg, daily
     Route: 065
  3. ASPIRIN [Concomitant]
     Indication: MYOCARDIAL ISCHAEMIA
     Dosage: UNK
     Route: 065
  4. CELECOXIB [Concomitant]
     Indication: MYOCARDIAL ISCHAEMIA
     Dosage: UNK
     Route: 065
  5. GLUCOPHAGE [Concomitant]
     Indication: MYOCARDIAL ISCHAEMIA
     Dosage: UNK
     Route: 065
  6. CLOPIDOGREL [Concomitant]
     Indication: MYOCARDIAL ISCHAEMIA
     Dosage: UNK
     Route: 065
  7. SELOKEN                            /00376902/ [Concomitant]
     Indication: MYOCARDIAL ISCHAEMIA
     Dosage: UNK
     Route: 065
  8. OMEGA 3 FISH OIL [Concomitant]
     Indication: MYOCARDIAL ISCHAEMIA
     Dosage: UNK
     Route: 065
  9. PARACETAMOL+CODEIN [Concomitant]
     Indication: MYOCARDIAL ISCHAEMIA
     Dosage: UNK mg, unknown
     Route: 065

REACTIONS (2)
  - Hepatotoxicity [Recovered/Resolved]
  - Hepatitis acute [Recovered/Resolved]
